FAERS Safety Report 7926821-6 (Version None)
Quarter: 2011Q4

REPORT INFORMATION
  Report Type: 
  Country: None (occurrence: None)
  Receive Date: 20111118
  Receipt Date: 20111108
  Transmission Date: 20120403
  Serious: Yes (Hospitalization, Other)
  Sender: FDA-Public Use
  Company Number: US-BAYER-2011-031426

PATIENT
  Age: 31 Year
  Sex: Female
  Weight: 73 kg

DRUGS (2)
  1. ANTIBIOTICS [Concomitant]
     Dosage: UNK
     Dates: start: 20090514
  2. YAZ [Suspect]
     Indication: CONTRACEPTION
     Dosage: UNK
     Dates: start: 20080301, end: 20090701

REACTIONS (6)
  - POST GASTRIC SURGERY SYNDROME [None]
  - CHOLELITHIASIS [None]
  - CHOLECYSTITIS ACUTE [None]
  - NAUSEA [None]
  - PROCEDURAL PAIN [None]
  - CHOLECYSTECTOMY [None]
